FAERS Safety Report 18605802 (Version 2)
Quarter: 2022Q3

REPORT INFORMATION
  Report Type: Spontaneous
  Country: NL (occurrence: NL)
  Receive Date: 20201211
  Receipt Date: 20220714
  Transmission Date: 20221026
  Serious: Yes (Other)
  Sender: FDA-Public Use
  Company Number: None

PATIENT

DRUGS (6)
  1. IBUPROFEN [Suspect]
     Active Substance: IBUPROFEN
     Indication: Pain
     Dosage: UNK (600 MG EVERY 6 HOURS A FEW DAYS IN CONNECTION WITH PULLING WISDOM TOOTH LOWER JAW (PRESCRIPTION
     Route: 065
     Dates: start: 20200917
  2. VALACYCLOVIR HYDROCHLORIDE [Suspect]
     Active Substance: VALACYCLOVIR HYDROCHLORIDE
     Indication: Prophylaxis
     Dosage: 500 MG, QD (MAINTENANCE DOSE 1X PER DAY)
     Route: 065
     Dates: start: 20200917, end: 20201012
  3. CHOLECALCIFEROL [Concomitant]
     Active Substance: CHOLECALCIFEROL
     Indication: Product used for unknown indication
     Dosage: 1 DF, QD (1 X D 1 TABLET 10PG (CANNOT FIND MARK)
     Route: 065
  4. LEVONORGESTREL [Concomitant]
     Active Substance: LEVONORGESTREL
     Indication: Product used for unknown indication
     Dosage: UNK (TABLET, 1,5 MG (MILLIGRAM))
     Route: 065
  5. IBUPROFEN [Suspect]
     Active Substance: IBUPROFEN
     Indication: Pain
     Dosage: 600 MG FOR A COUPLE OF DAYS EVERY 6 HOURS
     Dates: start: 20200917, end: 2020
  6. IBUPROFEN [Suspect]
     Active Substance: IBUPROFEN
     Dosage: 400 MG COUPLE OF TIMES A DAY
     Dates: start: 2020

REACTIONS (3)
  - Loss of consciousness [Recovered/Resolved]
  - Somnolence [Recovered/Resolved]
  - Extra dose administered [Unknown]

NARRATIVE: CASE EVENT DATE: 20200917
